FAERS Safety Report 20192333 (Version 1)
Quarter: 2021Q4

REPORT INFORMATION
  Report Type: Spontaneous
  Country: US (occurrence: US)
  Receive Date: 20211216
  Receipt Date: 20211216
  Transmission Date: 20220303
  Serious: No
  Sender: FDA-Public Use
  Company Number: US-ALLERGAN-2115638US

PATIENT
  Age: 23 Year
  Sex: Female

DRUGS (1)
  1. LO LOESTRIN FE [Suspect]
     Active Substance: ETHINYL ESTRADIOL\NORETHINDRONE ACETATE
     Indication: Hormone level abnormal
     Dosage: UNK
     Route: 065
     Dates: end: 202012

REACTIONS (3)
  - Off label use [Unknown]
  - Heavy menstrual bleeding [Not Recovered/Not Resolved]
  - Acne [Not Recovered/Not Resolved]
